FAERS Safety Report 4710946-2 (Version None)
Quarter: 2005Q3

REPORT INFORMATION
  Report Type: 
  Country: None (occurrence: None)
  Receive Date: 20050711
  Receipt Date: 20050606
  Transmission Date: 20060218
  Serious: Yes (Hospitalization)
  Sender: FDA-Public Use
  Company Number: PHBS2005JP08016

PATIENT
  Age: 69 Year
  Sex: Female

DRUGS (6)
  1. EBRANTIL [Concomitant]
     Indication: NEUROGENIC BLADDER
     Dosage: 15 MG, UNK
     Dates: start: 20050303, end: 20050525
  2. BASEN [Concomitant]
     Indication: DIABETES MELLITUS
     Dosage: 0.3 MG, TID
     Dates: start: 20050325
  3. MAGNESIUM OXIDE [Concomitant]
     Indication: CONSTIPATION
     Dosage: 1 G, UNK
     Dates: start: 20030101, end: 20050525
  4. TOLEDOMIN [Concomitant]
     Indication: DEPRESSION
     Dosage: 50 MG, UNK
     Dates: start: 20030101, end: 20050525
  5. FASTIC [Suspect]
     Indication: DIABETES MELLITUS
     Dosage: 270 MG, UNK
     Route: 048
     Dates: start: 20050520, end: 20050525
  6. RISPERDAL [Concomitant]
     Indication: DEPRESSION
     Dosage: 1 MG, UNK
     Dates: start: 20030101, end: 20050525

REACTIONS (2)
  - CARDIAC FAILURE CONGESTIVE [None]
  - DYSPNOEA [None]
